FAERS Safety Report 9892089 (Version 2)
Quarter: 2014Q1

REPORT INFORMATION
  Report Type: Spontaneous
  Country: IL (occurrence: IL)
  Receive Date: 20140212
  Receipt Date: 20140220
  Transmission Date: 20141002
  Serious: Yes (Hospitalization)
  Sender: FDA-Public Use
  Company Number: IL-ABBVIE-14P-082-1198513-00

PATIENT
  Age: 53 Year
  Sex: Male

DRUGS (2)
  1. HUMIRA [Suspect]
     Indication: CROHN^S DISEASE
  2. HUMIRA [Suspect]
     Dates: start: 20140206

REACTIONS (4)
  - Intestinal obstruction [Recovering/Resolving]
  - Abscess [Recovering/Resolving]
  - Spinal operation [Recovering/Resolving]
  - Dysuria [Recovering/Resolving]
